FAERS Safety Report 19062457 (Version 1)
Quarter: 2021Q1

REPORT INFORMATION
  Report Type: Spontaneous
  Country: US (occurrence: US)
  Receive Date: 20210326
  Receipt Date: 20210326
  Transmission Date: 20210420
  Serious: Yes (Life-Threatening, Hospitalization)
  Sender: FDA-Public Use
  Company Number: US-MYLANLABS-2021M1017631

PATIENT
  Age: 60 Year
  Sex: Male

DRUGS (2)
  1. DOCETAXEL. [Suspect]
     Active Substance: DOCETAXEL
     Indication: PROSTATE CANCER METASTATIC
     Dosage: UNK
     Route: 065
  2. RIVAROXABAN [Suspect]
     Active Substance: RIVAROXABAN
     Indication: ATRIAL FIBRILLATION
     Dosage: UNK
     Route: 065

REACTIONS (6)
  - Aneurysm ruptured [Unknown]
  - Carotid artery aneurysm [Recovered/Resolved]
  - Infective aneurysm [Recovered/Resolved]
  - Aortitis salmonella [Recovered/Resolved]
  - Dysphagia [Unknown]
  - Dyspnoea [Unknown]
